FAERS Safety Report 6005405-3 (Version None)
Quarter: 2008Q4

REPORT INFORMATION
  Report Type: 
  Country: None (occurrence: None)
  Receive Date: 20081217
  Receipt Date: 20081205
  Transmission Date: 20090506
  Serious: Yes (Hospitalization)
  Sender: FDA-Public Use
  Company Number: GR-RANBAXY-2008RR-19701

PATIENT
  Age: 36 Year
  Sex: Male

DRUGS (4)
  1. DOXYCYCLINE [Suspect]
     Indication: PNEUMONIA
  2. CINOLONE [Concomitant]
  3. INSULIN [Concomitant]
     Indication: HYPERGLYCAEMIA
  4. CEPHALOSPORIN [Concomitant]

REACTIONS (1)
  - JARISCH-HERXHEIMER REACTION [None]
